FAERS Safety Report 12187680 (Version 1)
Quarter: 2016Q1

REPORT INFORMATION
  Report Type: Spontaneous
  Country: US (occurrence: US)
  Receive Date: 20160317
  Receipt Date: 20160317
  Transmission Date: 20160526
  Serious: No
  Sender: FDA-Public Use
  Company Number: US-PERRIGO-15US007370

PATIENT
  Age: 61 Year
  Sex: Female
  Weight: 48.73 kg

DRUGS (6)
  1. NICOTINE POLACRILEX [Suspect]
     Active Substance: NICOTINE
     Indication: SMOKING CESSATION THERAPY
     Dosage: 4 MG, TWICE
     Route: 002
     Dates: start: 20150714, end: 20150714
  2. BABY ASPIRIN [Concomitant]
     Active Substance: ASPIRIN
     Indication: ROUTINE HEALTH MAINTENANCE
     Dosage: 81 MG, UNKNOWN
     Route: 048
     Dates: start: 2006
  3. OXYGEN. [Concomitant]
     Active Substance: OXYGEN
     Indication: EMPHYSEMA
     Dosage: 2 LITERS, UNKNOWN
     Route: 055
     Dates: start: 20120905
  4. IPRATROPIUM BROMIDE. [Concomitant]
     Active Substance: IPRATROPIUM BROMIDE
     Indication: EMPHYSEMA
     Dosage: UNKNOWN, UNKNOWN
     Route: 055
     Dates: start: 20120907
  5. RALOXIFENE. [Concomitant]
     Active Substance: RALOXIFENE
     Indication: HORMONE REPLACEMENT THERAPY
     Dosage: 60 MG, UNKNOWN
     Route: 065
     Dates: start: 2006
  6. EFFEXOR [Concomitant]
     Active Substance: VENLAFAXINE HYDROCHLORIDE
     Indication: MENTAL DISABILITY
     Dosage: 75 MG, UNKNOWN
     Route: 048
     Dates: start: 2002

REACTIONS (2)
  - Hiccups [Recovered/Resolved]
  - Throat tightness [Recovered/Resolved]

NARRATIVE: CASE EVENT DATE: 20150714
